FAERS Safety Report 8167303-9 (Version None)
Quarter: 2012Q1

REPORT INFORMATION
  Report Type: 
  Country: None (occurrence: None)
  Receive Date: 20120227
  Receipt Date: 20120216
  Transmission Date: 20120608
  Serious: Yes (Hospitalization)
  Sender: FDA-Public Use
  Company Number: TR-PFIZER INC-2012048132

PATIENT
  Age: 86 Year
  Sex: Female

DRUGS (5)
  1. CORDARONE [Suspect]
     Dosage: 1 DF, SINGLE
     Route: 048
     Dates: end: 20110601
  2. SURGAM [Concomitant]
     Dosage: UNK
     Dates: start: 20110601
  3. NEURONTIN [Concomitant]
     Dosage: UNK
     Dates: start: 20110601
  4. PHOS-EX [Concomitant]
     Dosage: UNK
  5. KETOSTERIL [Concomitant]
     Dosage: UNK

REACTIONS (2)
  - COMA [None]
  - BURNING SENSATION [None]
